FAERS Safety Report 5747058-5 (Version None)
Quarter: 2008Q2

REPORT INFORMATION
  Report Type: 
  Country: None (occurrence: None)
  Receive Date: 20080522
  Receipt Date: 20080514
  Transmission Date: 20081010
  Serious: Yes (Hospitalization)
  Sender: FDA-Public Use
  Company Number: AT-BOEHRINGER INGELHEIM GMBH, GERMANY-2008-BE-00040BE

PATIENT
  Age: 86 Year
  Sex: Male
  Weight: 70 kg

DRUGS (6)
  1. SPIRIVA [Suspect]
     Indication: CHRONIC OBSTRUCTIVE PULMONARY DISEASE
     Dosage: 1X1
     Route: 055
     Dates: start: 20080407, end: 20080410
  2. EUPHYLLIN [Concomitant]
     Indication: CHRONIC OBSTRUCTIVE PULMONARY DISEASE
     Dosage: 1X1
  3. CO-RENITEC [Concomitant]
     Indication: CHRONIC OBSTRUCTIVE PULMONARY DISEASE
     Dosage: 1X1
  4. ALNA [Concomitant]
     Indication: DYSURIA
  5. PRAVASTATIN [Concomitant]
     Indication: HYPERCHOLESTEROLAEMIA
  6. ALLOPURINOL [Concomitant]
     Indication: HYPERURICAEMIA
     Dosage: 1X1

REACTIONS (1)
  - ATRIOVENTRICULAR BLOCK COMPLETE [None]
